FAERS Safety Report 5727563-8 (Version None)
Quarter: 2008Q2

REPORT INFORMATION
  Report Type: 
  Country: None (occurrence: None)
  Receive Date: 20080505
  Receipt Date: 20080430
  Transmission Date: 20081010
  Serious: Yes (Other)
  Sender: FDA-Public Use
  Company Number: US-ASTRAZENECA-2008UW04503

PATIENT
  Age: 41 Year
  Sex: Male
  Weight: 115.9 kg

DRUGS (3)
  1. CRESTOR [Suspect]
     Indication: HYPERLIPIDAEMIA
     Route: 048
     Dates: start: 20071128, end: 20080229
  2. NORVASC [Concomitant]
     Route: 048
     Dates: start: 20070821
  3. LISINOPRIL [Concomitant]
     Route: 048
     Dates: start: 20070618

REACTIONS (1)
  - BLOOD TRIGLYCERIDES INCREASED [None]
